FAERS Safety Report 24545818 (Version 1)
Quarter: 2024Q4

REPORT INFORMATION
  Report Type: Spontaneous
  Country: GB (occurrence: GB)
  Receive Date: 20241024
  Receipt Date: 20241024
  Transmission Date: 20250115
  Serious: Yes (Other)
  Sender: ELI LILLY AND COMPANY
  Company Number: GB-ELI_LILLY_AND_COMPANY-GB202410015681

PATIENT
  Sex: Female

DRUGS (1)
  1. MOUNJARO [Suspect]
     Active Substance: TIRZEPATIDE
     Indication: Gastrointestinal disorder
     Dosage: 2.5 MG, UNKNOWN
     Route: 065

REACTIONS (4)
  - Menstruation irregular [Unknown]
  - Emotional distress [Unknown]
  - Depression [Unknown]
  - Off label use [Unknown]
